FAERS Safety Report 12209734 (Version 1)
Quarter: 2016Q1

REPORT INFORMATION
  Report Type: Spontaneous
  Country: US (occurrence: US)
  Receive Date: 20160325
  Receipt Date: 20160325
  Transmission Date: 20160526
  Serious: No
  Sender: FDA-Public Use
  Company Number: PHEH2016US007083

PATIENT
  Age: 49 Year
  Sex: Female

DRUGS (1)
  1. DESFERAL [Suspect]
     Active Substance: DEFEROXAMINE MESYLATE
     Indication: IRON OVERLOAD
     Dosage: 2 G, BIW (129 TOTAL GRAMS) OVER MANY, MANY MONTHS
     Route: 065

REACTIONS (3)
  - Serum ferritin increased [Unknown]
  - Inflammatory marker increased [Unknown]
  - Drug ineffective [Unknown]
